FAERS Safety Report 5033849-5 (Version None)
Quarter: 2006Q2

REPORT INFORMATION
  Report Type: 
  Country: None (occurrence: None)
  Receive Date: 20060518
  Receipt Date: 20050404
  Transmission Date: 20061013
  Serious: Yes (Other)
  Sender: FDA-Public Use
  Company Number: 2005034126

PATIENT
  Age: 16 Year
  Sex: Female
  Weight: 52.1637 kg

DRUGS (4)
  1. DEPO-PROVERA [Suspect]
     Indication: CONTRACEPTION
     Dosage: SEE IMAGE
     Route: 030
     Dates: start: 20020901, end: 20020901
  2. DEPO-PROVERA [Suspect]
     Indication: CONTRACEPTION
     Dosage: SEE IMAGE
     Route: 030
     Dates: start: 20050101, end: 20050101
  3. SERTRALINE HCL [Concomitant]
  4. METHYLPREDNISOLONE [Concomitant]

REACTIONS (3)
  - BACK PAIN [None]
  - FALL [None]
  - OSTEOPOROSIS [None]
